FAERS Safety Report 11536035 (Version 3)
Quarter: 2016Q3

REPORT INFORMATION
  Report Type: Spontaneous
  Country: DK (occurrence: DK)
  Receive Date: 20150922
  Receipt Date: 20160916
  Transmission Date: 20161109
  Serious: Yes (Other)
  Sender: FDA-Public Use
  Company Number: DK-ELI_LILLY_AND_COMPANY-DK201509003404

PATIENT
  Age: 54 Year
  Sex: Female
  Weight: 110 kg

DRUGS (1)
  1. ZYPREXA [Suspect]
     Active Substance: OLANZAPINE
     Indication: PSYCHOTIC DISORDER
     Dosage: 10 MG, UNKNOWN
     Route: 030
     Dates: start: 20130402, end: 20130402

REACTIONS (8)
  - Cardiac disorder [Recovered/Resolved]
  - Seizure [Recovered/Resolved]
  - Vomiting [Recovered/Resolved]
  - Nausea [Recovered/Resolved]
  - Urinary incontinence [Recovered/Resolved]
  - Epilepsy [Unknown]
  - Headache [Recovered/Resolved]
  - Anal incontinence [Recovered/Resolved]

NARRATIVE: CASE EVENT DATE: 20130402
